FAERS Safety Report 14521088 (Version 1)
Quarter: 2018Q1

REPORT INFORMATION
  Report Type: Spontaneous
  Country: None (occurrence: US)
  Receive Date: 20180212
  Receipt Date: 20180212
  Transmission Date: 20180509
  Serious: No
  Sender: FDA-Public Use
  Company Number: US-AMAG PHARMACEUTICALS, INC.-AMAG201700702

PATIENT

DRUGS (2)
  1. PRENATAL [Concomitant]
     Active Substance: VITAMINS
     Indication: PRODUCT USED FOR UNKNOWN INDICATION
     Dosage: UNK
     Route: 065
  2. MAKENA [Suspect]
     Active Substance: HYDROXYPROGESTERONE CAPROATE
     Indication: PREMATURE DELIVERY
     Dosage: 250 MG, WEEKLY
     Dates: start: 20170224

REACTIONS (1)
  - Medication error [Recovered/Resolved]

NARRATIVE: CASE EVENT DATE: 20170224
